FAERS Safety Report 22526274 (Version 1)
Quarter: 2023Q2

REPORT INFORMATION
  Report Type: Spontaneous
  Country: US (occurrence: US)
  Receive Date: 20230606
  Receipt Date: 20230606
  Transmission Date: 20230721
  Serious: Yes (Hospitalization)
  Sender: FDA-Public Use
  Company Number: US-MARINUS PHARMACEUTICALS, INC.-MAR2023000063

PATIENT
  Sex: Male

DRUGS (1)
  1. ZTALMY [Suspect]
     Active Substance: GANAXOLONE
     Indication: CDKL5 deficiency disorder
     Dosage: 12 MILLILITER, TID
     Route: 048

REACTIONS (3)
  - Seizure [Unknown]
  - Ear infection [Unknown]
  - Product dose omission issue [Unknown]
